FAERS Safety Report 6544368-9 (Version None)
Quarter: 2010Q1

REPORT INFORMATION
  Report Type: 
  Country: None (occurrence: None)
  Receive Date: 20100120
  Receipt Date: 20100120
  Transmission Date: 20100710
  Serious: Yes (Other)
  Sender: FDA-Public Use
  Company Number: None

PATIENT
  Age: 73 Year
  Sex: Female
  Weight: 81.6475 kg

DRUGS (2)
  1. METRONIDAZOLE [Suspect]
     Indication: STASIS SYNDROME
     Dosage: 500 MG T.I.D. PO
     Route: 048
  2. METRONIDAZOLE [Suspect]
     Dosage: UNKNOWN IV
     Route: 042

REACTIONS (4)
  - DYSPNOEA [None]
  - PARAESTHESIA [None]
  - RASH [None]
  - THROAT IRRITATION [None]
